FAERS Safety Report 8330255-2 (Version None)
Quarter: 2012Q2

REPORT INFORMATION
  Report Type: 
  Country: None (occurrence: None)
  Receive Date: 20120502
  Receipt Date: 20120425
  Transmission Date: 20120825
  Serious: Yes (Other)
  Sender: FDA-Public Use
  Company Number: US-PFIZER INC-2012063698

PATIENT
  Sex: Male
  Weight: 81.633 kg

DRUGS (1)
  1. IBUPROFEN (ADVIL) [Suspect]
     Indication: HEADACHE
     Dosage: 1500 MG, DAILY
     Route: 048
     Dates: start: 20080101

REACTIONS (2)
  - DRUG DEPENDENCE [None]
  - HEADACHE [None]
